FAERS Safety Report 8518564-5 (Version None)
Quarter: 2012Q3

REPORT INFORMATION
  Report Type: 
  Country: None (occurrence: None)
  Receive Date: 20120718
  Receipt Date: 20120521
  Transmission Date: 20120928
  Serious: No
  Sender: FDA-Public Use
  Company Number: US-BRISTOL-MYERS SQUIBB COMPANY-16607681

PATIENT
  Age: 57 Year
  Sex: Male

DRUGS (1)
  1. COUMADIN [Suspect]
     Dosage: DURATION: FOR 10YEARS

REACTIONS (2)
  - DRUG INEFFECTIVE [None]
  - TOOTH DISORDER [None]
